FAERS Safety Report 21191680 (Version 3)
Quarter: 2022Q3

REPORT INFORMATION
  Report Type: Other
  Country: US (occurrence: US)
  Receive Date: 20220809
  Receipt Date: 20220930
  Transmission Date: 20221027
  Serious: Yes (Hospitalization)
  Sender: FDA-Public Use
  Company Number: US-DECIPHERA PHARMACEUTICALS LLC-2022US000634

PATIENT
  Sex: Male

DRUGS (2)
  1. QINLOCK [Suspect]
     Active Substance: RIPRETINIB
     Indication: Gastrointestinal stromal tumour
     Dosage: 150 MILLIGRAM, QD
     Route: 048
     Dates: start: 20220420
  2. QINLOCK [Suspect]
     Active Substance: RIPRETINIB
     Dosage: 150 MILLIGRAM, QD
     Route: 048

REACTIONS (9)
  - Hospitalisation [Unknown]
  - Skin discolouration [Unknown]
  - Skin exfoliation [Unknown]
  - Skin fissures [Unknown]
  - Pain [Recovering/Resolving]
  - Pain in extremity [Recovering/Resolving]
  - Hyperkeratosis [Recovering/Resolving]
  - Dry skin [Recovering/Resolving]
  - Product dose omission issue [Unknown]
